FAERS Safety Report 4948255-9 (Version None)
Quarter: 2006Q1

REPORT INFORMATION
  Report Type: 
  Country: None (occurrence: None)
  Receive Date: 20060127
  Receipt Date: 20050228
  Transmission Date: 20060701
  Serious: Yes (Other)
  Sender: FDA-Public Use
  Company Number: 05-02-0308

PATIENT
  Age: 51 Year
  Sex: Male

DRUGS (12)
  1. CLOZAPINE [Suspect]
     Indication: SCHIZOPHRENIA
     Dosage: 400MG QD, ORAL
     Route: 048
     Dates: start: 20030709, end: 20050228
  2. ZETIA (NERSET) [Concomitant]
  3. PREVACID [Concomitant]
  4. DIOVAN [Concomitant]
  5. ASPIRIN [Concomitant]
  6. DOCUSATE SODIUM (DOCUSATE SODIUM) [Concomitant]
  7. BACTRIM [Concomitant]
  8. HYDROXYZINE HYDROCHLORIDE (HYDROXOZYNE HYDROCHLORIDE) [Concomitant]
  9. NORVASC [Concomitant]
  10. ADVAIR DISKUS 100/50 [Concomitant]
  11. LIPITOR [Concomitant]
  12. FERROUS SULFATE TAB [Concomitant]

REACTIONS (1)
  - AGRANULOCYTOSIS [None]
